FAERS Safety Report 8076638-X (Version None)
Quarter: 2012Q1

REPORT INFORMATION
  Report Type: 
  Country: None (occurrence: None)
  Receive Date: 20120127
  Receipt Date: 20120124
  Transmission Date: 20120608
  Serious: Yes (Death, Other)
  Sender: FDA-Public Use
  Company Number: PHHY2012CN005224

PATIENT
  Age: 75 Year
  Sex: Male

DRUGS (1)
  1. DOCETAXEL [Suspect]
     Indication: NON-SMALL CELL LUNG CANCER STAGE IV
     Dosage: 120 MG, UNK

REACTIONS (7)
  - INTERSTITIAL LUNG DISEASE [None]
  - SEPSIS [None]
  - ASTHENIA [None]
  - MULTI-ORGAN FAILURE [None]
  - RESPIRATORY FAILURE [None]
  - LUNG INFECTION [None]
  - DYSPNOEA [None]
